FAERS Safety Report 15426926 (Version 1)
Quarter: 2018Q3

REPORT INFORMATION
  Report Type: Spontaneous
  Country: US (occurrence: US)
  Receive Date: 20180925
  Receipt Date: 20180925
  Transmission Date: 20181010
  Serious: No
  Sender: FDA-Public Use
  Company Number: US-INDIVIOR LIMITED-INDV-108279-2018

PATIENT
  Age: 24 Year
  Sex: Male

DRUGS (1)
  1. SUBOXONE [Suspect]
     Active Substance: BUPRENORPHINE HYDROCHLORIDE\NALOXONE HYDROCHLORIDE
     Indication: DRUG DEPENDENCE
     Dosage: UNK, CUTTING
     Route: 060

REACTIONS (5)
  - Irritability [Not Recovered/Not Resolved]
  - Mood altered [Not Recovered/Not Resolved]
  - Euphoric mood [Not Recovered/Not Resolved]
  - Intentional underdose [Not Recovered/Not Resolved]
  - Wrong technique in product usage process [Not Recovered/Not Resolved]
